FAERS Safety Report 4409924-2 (Version None)
Quarter: 2004Q3

REPORT INFORMATION
  Report Type: 
  Country: None (occurrence: None)
  Receive Date: 20040728
  Receipt Date: 20040630
  Transmission Date: 20050211
  Serious: Yes (Hospitalization)
  Sender: FDA-Public Use
  Company Number: JP-GLAXOSMITHKLINE-B0337680A

PATIENT
  Age: 82 Year
  Sex: Female
  Weight: 35 kg

DRUGS (11)
  1. VALTREX [Suspect]
     Indication: HERPES ZOSTER
     Dosage: 1000MG PER DAY
     Route: 048
     Dates: start: 20040628, end: 20040628
  2. VICCLOX [Concomitant]
     Indication: HERPES ZOSTER
     Dosage: 250MG PER DAY
     Route: 042
     Dates: start: 20040629, end: 20040629
  3. WASSER V [Concomitant]
     Indication: NEUROPATHY PERIPHERAL
     Dosage: 3G PER DAY
     Route: 048
  4. SIGMART [Concomitant]
     Indication: ANGINA PECTORIS
     Dosage: 3TAB PER DAY
     Route: 048
  5. BIOFERMIN [Concomitant]
     Indication: GASTROINTESTINAL MUCOSAL DISORDER
     Dosage: 2G PER DAY
     Route: 048
  6. MUCOSTA [Concomitant]
     Indication: GASTRITIS
     Dosage: 2TAB PER DAY
     Route: 048
  7. ISOSORBIDE MONONITRATE [Concomitant]
     Indication: ANGINA PECTORIS
     Dosage: 2TAB PER DAY
     Route: 048
  8. ALUMIGEL [Concomitant]
     Dosage: 2G PER DAY
     Route: 048
     Dates: start: 20040615
  9. LANDEL [Concomitant]
     Indication: HYPERTENSION
     Dosage: .5MG PER DAY
     Route: 048
  10. LONGES [Concomitant]
     Indication: HYPERTENSION
     Dosage: .5MG PER DAY
     Route: 048
  11. NITRODERM [Concomitant]
     Indication: ANGINA PECTORIS
     Dosage: 1UNIT PER DAY
     Route: 062

REACTIONS (9)
  - APHASIA [None]
  - DELUSION [None]
  - DEMENTIA [None]
  - DEPRESSED LEVEL OF CONSCIOUSNESS [None]
  - FALL [None]
  - HEADACHE [None]
  - NAUSEA [None]
  - RESTLESSNESS [None]
  - SOLILOQUY [None]
